FAERS Safety Report 9684745 (Version 2)
Quarter: 2013Q4

REPORT INFORMATION
  Report Type: Report from Study
  Country: JP (occurrence: JP)
  Receive Date: 20131112
  Receipt Date: 20131212
  Transmission Date: 20140711
  Serious: Yes (Hospitalization)
  Sender: FDA-Public Use
  Company Number: JP-ABBVIE-13P-087-1168133-00

PATIENT
  Age: 39 Year
  Sex: Female
  Weight: 50 kg

DRUGS (4)
  1. LEUPRORELIN DEPOT [Suspect]
     Indication: BREAST CANCER
     Route: 058
     Dates: start: 20130524
  2. LEUPLIN [Suspect]
     Indication: BREAST CANCER
     Route: 058
     Dates: start: 20130426, end: 20130426
  3. DOXORUBICIN HYDROCHLORIDE [Suspect]
     Indication: BREAST CANCER
     Route: 050
  4. NOLVADEX [Concomitant]
     Indication: PRODUCT USED FOR UNKNOWN INDICATION
     Dates: start: 20130503

REACTIONS (4)
  - Cardiac failure [Recovered/Resolved]
  - Hot flush [Not Recovered/Not Resolved]
  - Malaise [Recovering/Resolving]
  - Depression [Recovering/Resolving]
